FAERS Safety Report 8247963 (Version 2)
Quarter: 2012Q4

REPORT INFORMATION
  Report Type: 
  Country: US (occurrence: US)
  Receive Date: 20111116
  Receipt Date: 20121005
  Transmission Date: 20130627
  Serious: Yes (Other)
  Sender: FDA-Public Use
  Company Number: US-ASTRAZENECA-2011SE67795

PATIENT
  Age: 50 Year
  Sex: Male

DRUGS (1)
  1. NEXIUM [Suspect]
     Indication: RECTAL CANCER
     Route: 048

REACTIONS (3)
  - Neoplasm malignant [Unknown]
  - Amnesia [Unknown]
  - Off label use [Unknown]
